FAERS Safety Report 4586103-X (Version None)
Quarter: 2005Q1

REPORT INFORMATION
  Report Type: 
  Country: None (occurrence: None)
  Receive Date: 20050217
  Receipt Date: 20041112
  Transmission Date: 20050727
  Serious: Yes (Death)
  Sender: FDA-Public Use
  Company Number: US-AMGEN-KDL099458

PATIENT
  Sex: Male

DRUGS (3)
  1. PROCRIT [Suspect]
     Indication: ANAEMIA OF MALIGNANT DISEASE
     Dates: start: 20040901
  2. FLUDARABINE PHOSPHATE [Concomitant]
     Dates: end: 20040901
  3. PREDNISONE [Concomitant]
     Dates: start: 20040901

REACTIONS (2)
  - DEATH [None]
  - PARAESTHESIA [None]
